FAERS Safety Report 14912034 (Version 2)
Quarter: 2018Q2

REPORT INFORMATION
  Report Type: Spontaneous
  Country: FR (occurrence: FR)
  Receive Date: 20180518
  Receipt Date: 20180529
  Transmission Date: 20180711
  Serious: Yes (Hospitalization)
  Sender: FDA-Public Use
  Company Number: FR-TEVA-2018-FR-892453

PATIENT
  Age: 55 Year
  Sex: Female

DRUGS (7)
  1. OLMETEC 20 MG, COATED TABLET [Concomitant]
     Indication: HYPERTENSION
     Route: 048
  2. CYCLOPHOSPHAMIDE. [Suspect]
     Active Substance: CYCLOPHOSPHAMIDE
     Indication: BREAST CANCER
     Route: 042
     Dates: start: 20171211, end: 20171211
  3. OROCAL VITAMINE D3 500 MG/200 U.I., COMPRIM? ? SUCER [Concomitant]
     Indication: VITAMIN SUPPLEMENTATION
     Route: 048
  4. SOLUPRED [Concomitant]
     Dosage: 80 MILLIGRAM DAILY;
     Route: 065
  5. XGEVA [Concomitant]
     Active Substance: DENOSUMAB
     Indication: METASTASES TO BONE
     Route: 058
  6. FARMORUBICINE [Suspect]
     Active Substance: EPIRUBICIN HYDROCHLORIDE
     Indication: BREAST CANCER
     Route: 042
     Dates: start: 20171211, end: 20171211
  7. FLUOROURACIL AGREEMENT 50 MG/ML, SOLUTION FOR INFUSION [Suspect]
     Active Substance: FLUOROURACIL
     Indication: BREAST CANCER
     Route: 042
     Dates: start: 20171211, end: 20171211

REACTIONS (3)
  - Thrombocytopenia [Not Recovered/Not Resolved]
  - Agranulocytosis [Not Recovered/Not Resolved]
  - Anaemia [Not Recovered/Not Resolved]

NARRATIVE: CASE EVENT DATE: 20180204
